FAERS Safety Report 4365466-4 (Version None)
Quarter: 2004Q2

REPORT INFORMATION
  Report Type: 
  Country: None (occurrence: None)
  Receive Date: 20040526
  Receipt Date: 20010803
  Transmission Date: 20050107
  Serious: Yes (Hospitalization)
  Sender: FDA-Public Use
  Company Number: US-BRISTOL-MYERS SQUIBB COMPANY-10939478

PATIENT
  Age: 59 Year
  Sex: Male

DRUGS (3)
  1. MEVALOTIN [Suspect]
     Indication: HYPERLIPIDAEMIA
     Dosage: DOSE WAS 10-MG FROM 24-APR-99 TO 24-JUL-99. DOSE INCREASED TO 20-MG ON 25-JUL-99 TO CONTINUING.
     Route: 048
     Dates: start: 19990424
  2. BUFFERIN [Suspect]
     Indication: CEREBRAL INFARCTION
     Route: 048
     Dates: start: 20010712, end: 20001125
  3. MAGNESIUM OXIDE [Concomitant]
     Indication: CONSTIPATION

REACTIONS (1)
  - GASTRIC ULCER HAEMORRHAGE [None]
